FAERS Safety Report 5063223-7 (Version None)
Quarter: 2006Q3

REPORT INFORMATION
  Report Type: 
  Country: None (occurrence: None)
  Receive Date: 20060724
  Receipt Date: 20060712
  Transmission Date: 20061208
  Serious: Yes (Life-Threatening, Hospitalization)
  Sender: FDA-Public Use
  Company Number: 2006SP002670

PATIENT
  Age: 81 Year
  Sex: Female

DRUGS (9)
  1. XOPENEX [Suspect]
     Indication: CHRONIC OBSTRUCTIVE PULMONARY DISEASE
     Dosage: SEE IMAGE
     Route: 055
     Dates: start: 20060401, end: 20060501
  2. XOPENEX [Suspect]
     Indication: CHRONIC OBSTRUCTIVE PULMONARY DISEASE
     Dosage: SEE IMAGE
     Route: 055
     Dates: start: 20060619, end: 20060619
  3. XOPENEX [Suspect]
     Indication: CHRONIC OBSTRUCTIVE PULMONARY DISEASE
     Dosage: SEE IMAGE
     Route: 055
     Dates: start: 20060707, end: 20060707
  4. XOPENEX [Suspect]
     Indication: CHRONIC OBSTRUCTIVE PULMONARY DISEASE
     Dosage: SEE IMAGE
     Route: 055
     Dates: start: 20060708
  5. OXYGEN [Concomitant]
  6. ADVAIR DISKUS 100/50 [Concomitant]
  7. ALBUTEROL SPIROS [Concomitant]
  8. XANAX [Concomitant]
  9. PREDNISONE [Concomitant]

REACTIONS (3)
  - DYSPNOEA [None]
  - RESPIRATORY ARREST [None]
  - TREMOR [None]
